FAERS Safety Report 6345540-3 (Version None)
Quarter: 2009Q3

REPORT INFORMATION
  Report Type: 
  Country: None (occurrence: None)
  Receive Date: 20090909
  Receipt Date: 20090826
  Transmission Date: 20100115
  Serious: Yes (Other)
  Sender: FDA-Public Use
  Company Number: FR-PFIZER INC-2009259742

PATIENT
  Age: 37 Year

DRUGS (2)
  1. DOSTINEX [Suspect]
     Indication: HYPERPROLACTINAEMIA
     Dosage: 0.5 MG, WEEKLY
     Route: 048
     Dates: start: 20060101
  2. ANAUSIN [Interacting]
     Indication: VOMITING
     Dosage: 15 MG, SINGLE
     Route: 048
     Dates: start: 20090816, end: 20090816

REACTIONS (4)
  - DRUG INTERACTION [None]
  - LABELLED DRUG-DRUG INTERACTION MEDICATION ERROR [None]
  - MEDICATION ERROR [None]
  - TREMOR [None]
